FAERS Safety Report 20841015 (Version 2)
Quarter: 2022Q2

REPORT INFORMATION
  Report Type: Spontaneous
  Country: US (occurrence: US)
  Receive Date: 20220517
  Receipt Date: 20220621
  Transmission Date: 20220720
  Serious: Yes (Other)
  Sender: FDA-Public Use
  Company Number: US-ALLERGAN-2206480US

PATIENT
  Sex: Female

DRUGS (1)
  1. KYBELLA [Suspect]
     Active Substance: DEOXYCHOLIC ACID
     Indication: Product used for unknown indication
     Dosage: UNK UNK, SINGLE
     Dates: start: 20210804, end: 20210804

REACTIONS (27)
  - Muscle strain [Not Recovered/Not Resolved]
  - Eyelid disorder [Not Recovered/Not Resolved]
  - Temporomandibular joint syndrome [Unknown]
  - Papule [Recovered/Resolved with Sequelae]
  - Generalised oedema [Unknown]
  - Arthropathy [Not Recovered/Not Resolved]
  - Fat tissue increased [Not Recovered/Not Resolved]
  - Skin discolouration [Not Recovered/Not Resolved]
  - Skin laxity [Not Recovered/Not Resolved]
  - Skin indentation [Not Recovered/Not Resolved]
  - Skin disorder [Not Recovered/Not Resolved]
  - Intentional product use issue [Unknown]
  - Lipoatrophy [Not Recovered/Not Resolved]
  - Periorbital fat atrophy [Not Recovered/Not Resolved]
  - Lid sulcus deepened [Not Recovered/Not Resolved]
  - Facial nerve disorder [Recovering/Resolving]
  - Dysarthria [Unknown]
  - Mass [Not Recovered/Not Resolved]
  - Pelvic floor dysfunction [Unknown]
  - Pelvic misalignment [Unknown]
  - Gait disturbance [Not Recovered/Not Resolved]
  - Muscle injury [Unknown]
  - Muscular weakness [Not Recovered/Not Resolved]
  - Dyspnoea [Not Recovered/Not Resolved]
  - Muscle atrophy [Not Recovered/Not Resolved]
  - Scar [Not Recovered/Not Resolved]
  - Facial paresis [Not Recovered/Not Resolved]

NARRATIVE: CASE EVENT DATE: 20210101
